FAERS Safety Report 13641494 (Version 1)
Quarter: 2017Q2

REPORT INFORMATION
  Report Type: Spontaneous
  Country: US (occurrence: US)
  Receive Date: 20170610
  Receipt Date: 20170610
  Transmission Date: 20170830
  Serious: Yes (Life-Threatening, Disabling)
  Sender: FDA-Public Use
  Company Number: None

PATIENT
  Age: 23 Year
  Sex: Female
  Weight: 54 kg

DRUGS (13)
  1. SYMBICORT [Concomitant]
     Active Substance: BUDESONIDE\FORMOTEROL FUMARATE DIHYDRATE
  2. LIDOCAINE PATCH [Concomitant]
     Active Substance: LIDOCAINE
  3. RETIN A MICRO [Concomitant]
  4. POTASSIUM SUPPLEMENT [Concomitant]
     Active Substance: POTASSIUM
  5. COLCHICINE. [Suspect]
     Active Substance: COLCHICINE
     Indication: BEHCET^S SYNDROME
     Dosage: ?          QUANTITY:1 TABLET(S);?
     Route: 048
     Dates: start: 20160801
  6. TOPAMAX [Concomitant]
     Active Substance: TOPIRAMATE
  7. LINZESS [Suspect]
     Active Substance: LINACLOTIDE
     Indication: IRRITABLE BOWEL SYNDROME
     Dosage: ?          OTHER STRENGTH:MCG;QUANTITY:1 CAPSULE(S);?
     Route: 048
     Dates: start: 20170404, end: 20170519
  8. CELEBREX [Concomitant]
     Active Substance: CELECOXIB
  9. MINIPILL [Concomitant]
  10. SALT TABS [Concomitant]
  11. VITAMIN B INJECTION [Concomitant]
  12. PANTOPRAZOL [Concomitant]
     Active Substance: PANTOPRAZOLE SODIUM
  13. SKYLA [Concomitant]
     Active Substance: LEVONORGESTREL

REACTIONS (2)
  - Hypokalaemia [None]
  - Diarrhoea [None]

NARRATIVE: CASE EVENT DATE: 20170404
